FAERS Safety Report 13030519 (Version 1)
Quarter: 2016Q4

REPORT INFORMATION
  Report Type: Report from Study
  Country: CA (occurrence: CA)
  Receive Date: 20161215
  Receipt Date: 20161215
  Transmission Date: 20170207
  Serious: Yes (Other)
  Sender: FDA-Public Use
  Company Number: CA-JNJFOC-20150705793

PATIENT
  Age: 57 Year
  Sex: Female

DRUGS (1)
  1. IMBRUVICA [Suspect]
     Active Substance: IBRUTINIB
     Indication: CHRONIC LYMPHOCYTIC LEUKAEMIA
     Dates: start: 20150612

REACTIONS (12)
  - Contusion [Unknown]
  - Muscle spasms [Recovered/Resolved]
  - Dizziness [Recovering/Resolving]
  - Nail disorder [Unknown]
  - Arthralgia [Not Recovered/Not Resolved]
  - Petechiae [Not Recovered/Not Resolved]
  - Gingival bleeding [Unknown]
  - Pain [Not Recovered/Not Resolved]
  - Red blood cell count increased [Not Recovered/Not Resolved]
  - Oropharyngeal pain [Not Recovered/Not Resolved]
  - Spontaneous haemorrhage [Recovering/Resolving]
  - Dyspepsia [Not Recovered/Not Resolved]

NARRATIVE: CASE EVENT DATE: 20150612
